FAERS Safety Report 7732748-5 (Version None)
Quarter: 2011Q3

REPORT INFORMATION
  Report Type: 
  Country: None (occurrence: None)
  Receive Date: 20110829
  Receipt Date: 20110822
  Transmission Date: 20111222
  Serious: Yes (Hospitalization, Other)
  Sender: FDA-Public Use
  Company Number: 2011029059

PATIENT
  Age: 9 Year
  Sex: Female
  Weight: 36.9682 kg

DRUGS (23)
  1. HIZENTRA [Suspect]
     Indication: IMMUNODEFICIENCY COMMON VARIABLE
     Dosage: (5 G 1X/WEEK, 25 ML VIA 2-3 SITES OVER 1 HOUR SUBCUTANEOUS), (SUBCUTANEOUS)
     Route: 058
     Dates: start: 20110411
  2. HIZENTRA [Suspect]
     Indication: IMMUNODEFICIENCY COMMON VARIABLE
     Dosage: (5 G 1X/WEEK, 25 ML VIA 2-3 SITES OVER 1 HOUR SUBCUTANEOUS), (SUBCUTANEOUS)
     Route: 058
     Dates: start: 20110815, end: 20110815
  3. HIZENTRA [Suspect]
     Indication: IMMUNODEFICIENCY COMMON VARIABLE
     Dosage: (5 G 1X/WEEK, 25 ML VIA 2-3 SITES OVER 1 HOUR SUBCUTANEOUS), (SUBCUTANEOUS)
     Route: 058
     Dates: start: 20110501
  4. HIZENTRA [Suspect]
  5. ROXICET [Concomitant]
  6. NEXIUM [Concomitant]
  7. CERON (CERONAPRIL) [Concomitant]
  8. NEURONTIN [Concomitant]
  9. CALCIUM CARBONATE [Concomitant]
  10. DIAZEPAM [Concomitant]
  11. DIASTAT (DIASTAT /01384601/) [Concomitant]
  12. SINUPRET (SINUPRET) [Concomitant]
  13. RUFINAMIDE (RUFINAMIDE) [Concomitant]
  14. KLONOPIN [Concomitant]
  15. KEPPRA [Concomitant]
  16. GLYCOPYRROLATE [Concomitant]
  17. MIRALAX (MACROGEL) [Concomitant]
  18. LORAZEPAM [Concomitant]
  19. LORTAB (CHLORPHENAMINE MALEATE) [Concomitant]
  20. PHENOBARBITAL TAB [Concomitant]
  21. CETIRIZINE [Concomitant]
  22. DIMETAPP (DIMETAPP /00127601/) [Concomitant]
  23. LOVENOX [Concomitant]

REACTIONS (4)
  - PAIN [None]
  - DEVICE RELATED INFECTION [None]
  - OTITIS MEDIA [None]
  - SKIN INFECTION [None]
